FAERS Safety Report 8222820-8 (Version None)
Quarter: 2012Q1

REPORT INFORMATION
  Report Type: 
  Country: None (occurrence: None)
  Receive Date: 20120320
  Receipt Date: 20120316
  Transmission Date: 20120608
  Serious: Yes (Other)
  Sender: FDA-Public Use
  Company Number: US-ABBOTT-12P-163-0910077-00

PATIENT
  Age: 45 Year
  Sex: Female

DRUGS (2)
  1. HUMIRA [Suspect]
     Indication: RHEUMATOID ARTHRITIS
     Dates: start: 20090901, end: 20091101
  2. RIFAMPIN [Concomitant]
     Indication: TUBERCULOSIS
     Dosage: DAILY

REACTIONS (2)
  - HEPATIC ENZYME INCREASED [None]
  - CHOLECYSTECTOMY [None]
